FAERS Safety Report 15947315 (Version 3)
Quarter: 2019Q4

REPORT INFORMATION
  Report Type: Spontaneous
  Country: US (occurrence: US)
  Receive Date: 20190211
  Receipt Date: 20191105
  Transmission Date: 20200122
  Serious: Yes (Other)
  Sender: FDA-Public Use
  Company Number: US-ASTRAZENECA-2019SE12047

PATIENT
  Age: 26575 Day
  Sex: Female
  Weight: 73.5 kg

DRUGS (28)
  1. OMEPRAZOLE. [Suspect]
     Active Substance: OMEPRAZOLE
     Indication: GASTROOESOPHAGEAL REFLUX DISEASE
     Route: 065
  2. GATIFLOXACIN. [Concomitant]
     Active Substance: GATIFLOXACIN
  3. OFLOXACIN. [Concomitant]
     Active Substance: OFLOXACIN
  4. LEVAQUIN [Concomitant]
     Active Substance: LEVOFLOXACIN
  5. ASPIRIN. [Concomitant]
     Active Substance: ASPIRIN
     Indication: PROPHYLAXIS
     Route: 065
     Dates: start: 2006
  6. CALTRATE [Concomitant]
     Active Substance: CALCIUM CARBONATE
  7. NEXIUM [Suspect]
     Active Substance: ESOMEPRAZOLE MAGNESIUM
     Indication: GASTROOESOPHAGEAL REFLUX DISEASE
     Route: 048
     Dates: start: 2001, end: 2006
  8. LOPID [Concomitant]
     Active Substance: GEMFIBROZIL
  9. PEPCID [Concomitant]
     Active Substance: FAMOTIDINE
     Route: 065
     Dates: start: 201809
  10. CALCIUM [Concomitant]
     Active Substance: CALCIUM
     Indication: DIETARY SUPPLEMENT PRESCRIBING ERROR
     Dosage: 500 MG
     Route: 065
     Dates: start: 2006
  11. PREDNISOLONE. [Concomitant]
     Active Substance: PREDNISOLONE
  12. CALCIUM [Concomitant]
     Active Substance: CALCIUM
  13. FLOUXETINE [Concomitant]
     Active Substance: FLUOXETINE HYDROCHLORIDE
     Indication: ANXIETY
     Route: 065
     Dates: start: 1990
  14. IRON [Concomitant]
     Active Substance: IRON
     Indication: DIETARY SUPPLEMENT PRESCRIBING ERROR
     Dosage: 28 MG
     Route: 065
     Dates: start: 2012
  15. KETOROLAC [Concomitant]
     Active Substance: KETOROLAC TROMETHAMINE
     Indication: HYPERTENSION
  16. LISINOPRIL. [Concomitant]
     Active Substance: LISINOPRIL
     Indication: HYPERTENSION
     Route: 065
     Dates: start: 1980
  17. TUMS [Concomitant]
     Active Substance: CALCIUM CARBONATE
     Dosage: 2 TABLET A DAY
     Route: 065
     Dates: start: 1990, end: 1995
  18. TART CHERRY JUICE [Concomitant]
     Indication: GOUT
     Dosage: PILLS
     Route: 065
     Dates: start: 2006
  19. PROZAC [Concomitant]
     Active Substance: FLUOXETINE HYDROCHLORIDE
     Indication: ANXIETY
  20. VITAMIN B12 [Concomitant]
     Active Substance: CYANOCOBALAMIN
     Indication: DIETARY SUPPLEMENT PRESCRIBING ERROR
     Dosage: 500 MG
     Route: 065
     Dates: start: 2006
  21. OMEPRAZOLE. [Suspect]
     Active Substance: OMEPRAZOLE
     Indication: GASTROOESOPHAGEAL REFLUX DISEASE
     Route: 065
     Dates: start: 2006
  22. HCTZ [Concomitant]
     Active Substance: HYDROCHLOROTHIAZIDE
     Indication: HYPERTENSION
     Route: 065
     Dates: start: 1990
  23. PURE BAKING SODA [Concomitant]
     Active Substance: SODIUM BICARBONATE
     Route: 065
     Dates: start: 1990, end: 1995
  24. NEXIUM [Suspect]
     Active Substance: ESOMEPRAZOLE MAGNESIUM
     Indication: GASTROOESOPHAGEAL REFLUX DISEASE
     Route: 048
     Dates: start: 2001, end: 2006
  25. OMEPRAZOLE. [Suspect]
     Active Substance: OMEPRAZOLE
     Indication: GASTROOESOPHAGEAL REFLUX DISEASE
     Route: 065
  26. OMEPRAZOLE. [Suspect]
     Active Substance: OMEPRAZOLE
     Indication: GASTROOESOPHAGEAL REFLUX DISEASE
     Route: 065
     Dates: start: 2006
  27. SIMVASTATIN. [Concomitant]
     Active Substance: SIMVASTATIN
     Indication: BLOOD CHOLESTEROL
     Route: 065
     Dates: start: 1990
  28. FELODIPINE. [Concomitant]
     Active Substance: FELODIPINE
     Indication: HYPERTENSION
     Route: 065
     Dates: start: 1990

REACTIONS (1)
  - Chronic kidney disease [Not Recovered/Not Resolved]

NARRATIVE: CASE EVENT DATE: 20170802
